FAERS Safety Report 7227020-6 (Version None)
Quarter: 2011Q1

REPORT INFORMATION
  Report Type: 
  Country: None (occurrence: None)
  Receive Date: 20110114
  Receipt Date: 20100228
  Transmission Date: 20110831
  Serious: Yes (Hospitalization, Other)
  Sender: FDA-Public Use
  Company Number: PHHY2010US75157

PATIENT
  Sex: Male

DRUGS (2)
  1. GLEEVEC [Suspect]
     Indication: GASTROINTESTINAL STROMAL TUMOUR
     Dosage: UNK
  2. GLEEVEC [Suspect]
     Dosage: UNK

REACTIONS (7)
  - NEOPLASM MALIGNANT [None]
  - ASTHENIA [None]
  - HERNIA [None]
  - GASTROINTESTINAL STROMAL TUMOUR [None]
  - INTESTINAL OBSTRUCTION [None]
  - VOMITING [None]
  - DYSURIA [None]
